FAERS Safety Report 4625088-4 (Version None)
Quarter: 2005Q2

REPORT INFORMATION
  Report Type: 
  Country: None (occurrence: None)
  Receive Date: 20050325
  Receipt Date: 20050118
  Transmission Date: 20051028
  Serious: No
  Sender: FDA-Public Use
  Company Number: USA050188578

PATIENT
  Age: 65 Year
  Sex: Female
  Weight: 59 kg

DRUGS (1)
  1. FORTEO [Suspect]
     Indication: OSTEOPOROSIS
     Dosage: 20 UG/ 1 DAY
     Dates: start: 20030101

REACTIONS (5)
  - INJECTION SITE PAIN [None]
  - JOINT SPRAIN [None]
  - NECK PAIN [None]
  - PULMONARY CALCIFICATION [None]
  - RIB FRACTURE [None]
